FAERS Safety Report 5963648-9 (Version None)
Quarter: 2008Q4

REPORT INFORMATION
  Report Type: 
  Country: None (occurrence: None)
  Receive Date: 20081124
  Receipt Date: 20081114
  Transmission Date: 20090506
  Serious: Yes (Hospitalization)
  Sender: FDA-Public Use
  Company Number: DE-GENENTECH-271778

PATIENT
  Sex: Female

DRUGS (2)
  1. RAPTIVA [Suspect]
     Indication: PUSTULAR PSORIASIS
     Dosage: 0.63 ML, 1/WEEK
     Route: 058
     Dates: start: 20080925, end: 20081030
  2. RAPTIVA [Suspect]

REACTIONS (1)
  - LYMPHADENOPATHY [None]
